FAERS Safety Report 13629812 (Version 1)
Quarter: 2017Q2

REPORT INFORMATION
  Report Type: Spontaneous
  Country: FR (occurrence: FR)
  Receive Date: 20170608
  Receipt Date: 20170608
  Transmission Date: 20170830
  Serious: Yes (Other)
  Sender: FDA-Public Use
  Company Number: FR-BAYER-2017-093830

PATIENT
  Age: 45 Year
  Sex: Female

DRUGS (7)
  1. OMEPRAZOLE. [Concomitant]
     Active Substance: OMEPRAZOLE
  2. VALSARTAN. [Concomitant]
     Active Substance: VALSARTAN
     Dosage: 80 MG, QD
  3. MIRENA [Suspect]
     Active Substance: LEVONORGESTREL
     Dosage: 20 MCG/24HR, CONT
     Route: 015
     Dates: start: 20161107
  4. TRAMADOL. [Concomitant]
     Active Substance: TRAMADOL
     Dosage: 50 MG, UNK
  5. ESIDREX [Concomitant]
     Active Substance: HYDROCHLOROTHIAZIDE
     Dosage: 25 MG, UNK
  6. SPIRONOLACTONE. [Concomitant]
     Active Substance: SPIRONOLACTONE
     Dosage: 25 MG, BID
  7. NEBIVOLOL. [Concomitant]
     Active Substance: NEBIVOLOL
     Dosage: 100 MG, UNK

REACTIONS (26)
  - Hirsutism [None]
  - Diarrhoea [None]
  - Presyncope [None]
  - Procedural pain [None]
  - Acne [None]
  - Weight increased [None]
  - Hyperhidrosis [None]
  - Hot flush [None]
  - Anxiety [None]
  - Anhedonia [None]
  - Adnexa uteri pain [None]
  - Asthenia [None]
  - Dyspepsia [None]
  - Fatigue [None]
  - Eczema [None]
  - Migraine [None]
  - Abdominal pain [None]
  - Feeding disorder [None]
  - Insomnia [None]
  - Suicidal ideation [None]
  - Hair growth abnormal [None]
  - Arthralgia [None]
  - Hypertension [None]
  - Alopecia [None]
  - Mental fatigue [None]
  - Loss of personal independence in daily activities [None]
